FAERS Safety Report 13461848 (Version 1)
Quarter: 2017Q2

REPORT INFORMATION
  Report Type: Spontaneous
  Country: US (occurrence: US)
  Receive Date: 20170420
  Receipt Date: 20170420
  Transmission Date: 20170830
  Serious: No
  Sender: FDA-Public Use
  Company Number: US-GLAXOSMITHKLINE-US2017056066

PATIENT
  Age: 63 Year
  Sex: Male

DRUGS (1)
  1. FLONASE SENSIMIST ALLERGY RELIEF [Suspect]
     Active Substance: FLUTICASONE FUROATE
     Indication: HYPERSENSITIVITY
     Dosage: 3 PUFF(S), UNK, 3 SPRAYS PER NOSTRIL
     Dates: start: 201703, end: 201703

REACTIONS (2)
  - Drug ineffective [Unknown]
  - Overdose [Unknown]
